FAERS Safety Report 22825934 (Version 3)
Quarter: 2024Q2

REPORT INFORMATION
  Report Type: Spontaneous
  Country: IT (occurrence: IT)
  Receive Date: 20230816
  Receipt Date: 20240430
  Transmission Date: 20240716
  Serious: Yes (Life-Threatening, Hospitalization, Other)
  Sender: FDA-Public Use
  Company Number: IT-MLMSERVICE-20230727-4442832-1

PATIENT
  Age: 82 Year
  Sex: Female

DRUGS (20)
  1. AMIODARONE [Interacting]
     Active Substance: AMIODARONE
     Indication: Atrial fibrillation
     Dosage: 200 MILLIGRAM
     Route: 048
     Dates: start: 202301
  2. AMIODARONE [Interacting]
     Active Substance: AMIODARONE
     Indication: COVID-19
     Dosage: 200 MILLIGRAM
     Route: 048
     Dates: start: 20230124, end: 202301
  3. AMIODARONE [Interacting]
     Active Substance: AMIODARONE
     Indication: Myocarditis post infection
  4. APIXABAN [Interacting]
     Active Substance: APIXABAN
     Indication: Anticoagulant therapy
     Dosage: 5 MILLIGRAM, TWO TIMES A DAY
     Route: 065
     Dates: start: 20230124, end: 20230201
  5. APIXABAN [Interacting]
     Active Substance: APIXABAN
     Indication: Thrombosis prophylaxis
  6. ASPIRIN [Concomitant]
     Active Substance: ASPIRIN
     Indication: Product used for unknown indication
     Dosage: 100 MILLIGRAM, ONCE A DAY
     Route: 048
  7. ATORVASTATIN [Concomitant]
     Active Substance: ATORVASTATIN
     Indication: Product used for unknown indication
     Dosage: 20 MILLIGRAM, ONCE A DAY
     Route: 048
  8. CARVEDILOL [Concomitant]
     Active Substance: CARVEDILOL
     Indication: Product used for unknown indication
     Dosage: 6.25 MILLIGRAM, TWO TIMES A DAY
     Route: 048
  9. CARVEDILOL [Concomitant]
     Active Substance: CARVEDILOL
     Dosage: 12.5 MILLIGRAM, ONCE A DAY
     Route: 048
  10. CIPROFLOXACIN [Concomitant]
     Active Substance: CIPROFLOXACIN
     Indication: Pneumonia
     Dosage: 500 MILLIGRAM
     Route: 065
     Dates: start: 20230121, end: 20230122
  11. CIPROFLOXACIN [Concomitant]
     Active Substance: CIPROFLOXACIN
     Dosage: 500 MILLIGRAM, BID (0.5 DAY)
     Route: 065
     Dates: start: 20230121, end: 20230122
  12. HYDROCHLOROTHIAZIDE [Concomitant]
     Active Substance: HYDROCHLOROTHIAZIDE
     Indication: Product used for unknown indication
     Dosage: 25 MILLIGRAM, ONCE A DAY
     Route: 048
  13. LOSARTAN [Concomitant]
     Active Substance: LOSARTAN
     Indication: Product used for unknown indication
     Dosage: 100 MILLIGRAM, ONCE A DAY
     Route: 048
  14. MEMANTINE [Concomitant]
     Active Substance: MEMANTINE
     Indication: Product used for unknown indication
     Dosage: 20 MILLIGRAM
     Route: 065
  15. Nor-adrenalin [Concomitant]
     Indication: COVID-19
     Dosage: UNK
     Route: 042
     Dates: start: 20230122, end: 2023
  16. Nor-adrenalin [Concomitant]
     Indication: Myocarditis post infection
  17. OXYGEN [Concomitant]
     Active Substance: OXYGEN
     Indication: Product used for unknown indication
     Dosage: PROGRESSIVELY DOSE WAS REDUCED
     Route: 065
     Dates: start: 202301
  18. OXYGEN [Concomitant]
     Active Substance: OXYGEN
     Dosage: UNK
     Route: 065
     Dates: start: 20230124
  19. PIPERACILLIN AND TAZOBACTAM [Concomitant]
     Active Substance: PIPERACILLIN SODIUM\TAZOBACTAM SODIUM
     Indication: Pneumonia
     Dosage: UNK
     Route: 065
     Dates: start: 20230124
  20. RAMIPRIL [Concomitant]
     Active Substance: RAMIPRIL
     Indication: Pneumonia
     Dosage: 2.5 MILLIGRAM
     Route: 065

REACTIONS (3)
  - Cardiac tamponade [Recovered/Resolved]
  - Pericardial haemorrhage [Recovered/Resolved]
  - Drug interaction [Unknown]

NARRATIVE: CASE EVENT DATE: 20230124
